FAERS Safety Report 22083368 (Version 2)
Quarter: 2023Q2

REPORT INFORMATION
  Report Type: Report from Study
  Country: US (occurrence: US)
  Receive Date: 20230310
  Receipt Date: 20230405
  Transmission Date: 20230722
  Serious: Yes (Hospitalization)
  Sender: FDA-Public Use
  Company Number: US-ABBVIE-4331590

PATIENT
  Sex: Female

DRUGS (2)
  1. RINVOQ [Suspect]
     Active Substance: UPADACITINIB
     Indication: Psoriatic arthropathy
     Dosage: UNKNOWN
     Route: 048
  2. METHOTREXATE [Concomitant]
     Active Substance: METHOTREXATE
     Indication: Product used for unknown indication

REACTIONS (17)
  - Nephrolithiasis [Unknown]
  - Nausea [Unknown]
  - Illness [Unknown]
  - Fall [Unknown]
  - Blister infected [Unknown]
  - Fall [Recovered/Resolved]
  - Bronchitis [Unknown]
  - Musculoskeletal disorder [Recovered/Resolved]
  - Dizziness [Unknown]
  - Pneumonia [Unknown]
  - Arthralgia [Unknown]
  - Mobility decreased [Unknown]
  - Lethargy [Unknown]
  - Unevaluable event [Unknown]
  - Musculoskeletal disorder [Unknown]
  - Feeding disorder [Unknown]
  - Stent placement [Unknown]

NARRATIVE: CASE EVENT DATE: 20220101
